FAERS Safety Report 15937356 (Version 1)
Quarter: 2019Q1

REPORT INFORMATION
  Report Type: Spontaneous
  Country: US (occurrence: US)
  Receive Date: 20190117
  Receipt Date: 20190117
  Transmission Date: 20190417
  Serious: No
  Sender: FDA-Public Use
  Company Number: None

PATIENT
  Sex: Female

DRUGS (1)
  1. BOTOX [Suspect]
     Active Substance: ONABOTULINUMTOXINA
     Indication: MIGRAINE
     Dosage: OTHER STRENGTH:200 U/VL;OTHER DOSE:155 UNITS;OTHER FREQUENCY:EVERY 3 MONTHS;?
     Route: 030
     Dates: start: 201811

REACTIONS (3)
  - Diplopia [None]
  - Vision blurred [None]
  - Eye swelling [None]
